FAERS Safety Report 16956052 (Version 1)
Quarter: 2019Q4

REPORT INFORMATION
  Report Type: Spontaneous
  Country: US (occurrence: US)
  Receive Date: 20191024
  Receipt Date: 20191024
  Transmission Date: 20200122
  Serious: No
  Sender: FDA-Public Use
  Company Number: US-BAYER-2019-192085

PATIENT
  Age: 76 Year
  Sex: Female
  Weight: 65 kg

DRUGS (3)
  1. BENEFIBER FIBER SUPPLEMENT [Concomitant]
     Indication: SUPPLEMENTATION THERAPY
  2. MIRALAX [Suspect]
     Active Substance: POLYETHYLENE GLYCOL 3350
     Indication: CONSTIPATION
     Dosage: 2 DF, HS
     Route: 048
     Dates: start: 201904
  3. MIRALAX [Suspect]
     Active Substance: POLYETHYLENE GLYCOL 3350
     Indication: CONSTIPATION
     Dosage: 1 DF, HS
     Route: 048
     Dates: start: 201904

REACTIONS (2)
  - Therapeutic product effect incomplete [Unknown]
  - Therapeutic product effect increased [Unknown]
